FAERS Safety Report 5994614-5 (Version None)
Quarter: 2008Q4

REPORT INFORMATION
  Report Type: 
  Country: None (occurrence: None)
  Receive Date: 20081210
  Receipt Date: 20081125
  Transmission Date: 20090506
  Serious: Yes (Other)
  Sender: FDA-Public Use
  Company Number: 2008S1020665

PATIENT
  Age: 67 Year
  Sex: Female

DRUGS (8)
  1. DERALINE (PROPRANOLOL) (40 MG) [Suspect]
     Indication: BLOOD PRESSURE
     Dosage: 40 MG; TWICE A DAY; ORAL; 60 MG; TWICE A DAY; ORAL
     Route: 048
     Dates: start: 20030101, end: 20071101
  2. DERALINE (PROPRANOLOL) (40 MG) [Suspect]
     Indication: MIGRAINE PROPHYLAXIS
     Dosage: 40 MG; TWICE A DAY; ORAL; 60 MG; TWICE A DAY; ORAL
     Route: 048
     Dates: start: 20030101, end: 20071101
  3. DERALINE (PROPRANOLOL) (40 MG) [Suspect]
     Indication: BLOOD PRESSURE
     Dosage: 40 MG; TWICE A DAY; ORAL; 60 MG; TWICE A DAY; ORAL
     Route: 048
     Dates: start: 20071101, end: 20081101
  4. DERALINE (PROPRANOLOL) (40 MG) [Suspect]
     Indication: MIGRAINE PROPHYLAXIS
     Dosage: 40 MG; TWICE A DAY; ORAL; 60 MG; TWICE A DAY; ORAL
     Route: 048
     Dates: start: 20071101, end: 20081101
  5. IMIGRAN [Concomitant]
  6. PANAMAX [Concomitant]
  7. PARADEX [Concomitant]
  8. FRUSEMIDE [Concomitant]

REACTIONS (11)
  - ASTHENIA [None]
  - BLOOD PRESSURE FLUCTUATION [None]
  - DYSPNOEA [None]
  - FLUID RETENTION [None]
  - GLOMERULAR FILTRATION RATE DECREASED [None]
  - MUSCULOSKELETAL STIFFNESS [None]
  - OEDEMA PERIPHERAL [None]
  - PAIN IN EXTREMITY [None]
  - PALPITATIONS [None]
  - PARAESTHESIA [None]
  - WEIGHT INCREASED [None]
